FAERS Safety Report 17861884 (Version 7)
Quarter: 2020Q4

REPORT INFORMATION
  Report Type: Spontaneous
  Country: US (occurrence: US)
  Receive Date: 20200604
  Receipt Date: 20201017
  Transmission Date: 20210113
  Serious: Yes (Hospitalization, Congenital Anomaly, Other)
  Sender: FDA-Public Use
  Company Number: NVSC2020US156211

PATIENT
  Sex: Female

DRUGS (5)
  1. ALBUTEROL. [Concomitant]
     Active Substance: ALBUTEROL
     Indication: FOETAL EXPOSURE DURING PREGNANCY
     Route: 064
  2. ONDANSETRON. [Suspect]
     Active Substance: ONDANSETRON
     Indication: FOETAL EXPOSURE DURING PREGNANCY
     Dosage: MOTHER DOSE: 4 MG, PRN
     Route: 064
  3. ZOFRAN [Suspect]
     Active Substance: ONDANSETRON HYDROCHLORIDE
     Indication: FOETAL EXPOSURE DURING PREGNANCY
     Route: 064
  4. ZOFRAN ODT [Suspect]
     Active Substance: ONDANSETRON HYDROCHLORIDE
     Indication: FOETAL EXPOSURE DURING PREGNANCY
     Dosage: MOTHER DOSE: 04 MG, TID
     Route: 064
  5. PULMICORT TURBUHALER [Concomitant]
     Active Substance: BUDESONIDE
     Indication: FOETAL EXPOSURE DURING PREGNANCY
     Route: 064

REACTIONS (45)
  - Respiratory distress [Unknown]
  - Pyrexia [Recovered/Resolved]
  - Nasal congestion [Unknown]
  - Flatulence [Unknown]
  - Discomfort [Unknown]
  - Pain in extremity [Unknown]
  - Ventricular septal defect [Unknown]
  - Tricuspid valve incompetence [Unknown]
  - Injury [Unknown]
  - Jaundice neonatal [Unknown]
  - Hypotonia [Unknown]
  - Failure to thrive [Unknown]
  - Dyspnoea [Unknown]
  - Tonsillar hypertrophy [Unknown]
  - Atrial septal defect [Unknown]
  - Developmental delay [Unknown]
  - Cardiac murmur [Unknown]
  - Neonatal sinus tachycardia [Unknown]
  - Nasopharyngitis [Unknown]
  - Ataxia [Unknown]
  - Otitis media acute [Unknown]
  - Bronchial wall thickening [Unknown]
  - Right ventricular hypertension [Unknown]
  - Supraventricular extrasystoles [Unknown]
  - Constipation [Recovering/Resolving]
  - Rash [Unknown]
  - Bronchiolitis [Unknown]
  - Upper respiratory tract infection [Unknown]
  - Pneumonia respiratory syncytial viral [Unknown]
  - Gross motor delay [Unknown]
  - Weight gain poor [Recovering/Resolving]
  - Candida infection [Unknown]
  - Keratosis pilaris [Unknown]
  - Conjunctivitis [Unknown]
  - Tachypnoea [Unknown]
  - Foetal exposure during pregnancy [Unknown]
  - Rhinorrhoea [Unknown]
  - Allergic colitis [Unknown]
  - Tympanic membrane perforation [Unknown]
  - Left-to-right cardiac shunt [Unknown]
  - Viral infection [Unknown]
  - Candida nappy rash [Unknown]
  - Wheezing [Unknown]
  - Cough [Unknown]
  - Otorrhoea [Unknown]
